FAERS Safety Report 12626769 (Version 1)
Quarter: 2016Q3

REPORT INFORMATION
  Report Type: Report from Study
  Country: DE (occurrence: DE)
  Receive Date: 20160805
  Receipt Date: 20160805
  Transmission Date: 20161109
  Serious: Yes (Hospitalization, Other)
  Sender: FDA-Public Use
  Company Number: DE-ELI_LILLY_AND_COMPANY-DE201608000261

PATIENT
  Age: 76 Year
  Sex: Male
  Weight: 78 kg

DRUGS (4)
  1. 5-FLUOROURACIL [Suspect]
     Active Substance: FLUOROURACIL
     Indication: COLORECTAL CANCER METASTATIC
     Dosage: 2800 MG/M2, UNKNOWN
     Route: 042
     Dates: start: 20160706, end: 20160706
  2. FOLINIC ACID [Suspect]
     Active Substance: LEUCOVORIN
     Indication: COLORECTAL CANCER METASTATIC
     Dosage: 400 MG/M2, UNKNOWN
     Route: 042
     Dates: start: 20160706, end: 20160706
  3. CETUXIMAB [Suspect]
     Active Substance: CETUXIMAB
     Indication: COLORECTAL CANCER METASTATIC
     Dosage: 778 MG, UNKNOWN
     Route: 042
     Dates: start: 20160706, end: 20160706
  4. IRINOTECAN [Suspect]
     Active Substance: IRINOTECAN
     Indication: COLORECTAL CANCER METASTATIC
     Dosage: 180 MG/M2, UNKNOWN
     Route: 042
     Dates: start: 20160706, end: 20160706

REACTIONS (3)
  - Diarrhoea [Recovered/Resolved]
  - Renal failure [Unknown]
  - Hypotension [Recovered/Resolved]

NARRATIVE: CASE EVENT DATE: 20160713
